FAERS Safety Report 8106976-3 (Version None)
Quarter: 2011Q4

REPORT INFORMATION
  Report Type: 
  Country: None (occurrence: None)
  Receive Date: 20111223
  Receipt Date: 20110511
  Transmission Date: 20120403
  Serious: Yes (Other)
  Sender: FDA-Public Use
  Company Number: PHHY2011US40325

PATIENT
  Sex: Male

DRUGS (1)
  1. PARLODEL [Suspect]
     Indication: PROLACTINOMA

REACTIONS (2)
  - NEOPLASM PROGRESSION [None]
  - HEADACHE [None]
